FAERS Safety Report 23332157 (Version 1)
Quarter: 2023Q4

REPORT INFORMATION
  Report Type: Spontaneous
  Country: US (occurrence: US)
  Receive Date: 20231222
  Receipt Date: 20231222
  Transmission Date: 20240109
  Serious: Yes (Other)
  Sender: FDA-Public Use
  Company Number: US-PFIZER INC-PV202300205161

PATIENT
  Age: 72 Year
  Sex: Female
  Weight: 73.56 kg

DRUGS (1)
  1. IBRANCE [Suspect]
     Active Substance: PALBOCICLIB
     Indication: Breast cancer metastatic
     Dosage: TAKE 1 TABLET BY MOUTH ON DAYS 1-21 THEN OFF 1 WEEK FOR 28 DAYS
     Route: 048

REACTIONS (1)
  - Neutropenia [Unknown]
